FAERS Safety Report 11813281 (Version 1)
Quarter: 2015Q4

REPORT INFORMATION
  Report Type: Spontaneous
  Country: US (occurrence: None)
  Receive Date: 20151207
  Receipt Date: 20151207
  Transmission Date: 20160305
  Serious: Yes (Other)
  Sender: FDA-Public Use
  Company Number: None

PATIENT
  Sex: Female
  Weight: 52.8 kg

DRUGS (1)
  1. HARVONI [Suspect]
     Active Substance: LEDIPASVIR\SOFOSBUVIR
     Indication: CHRONIC HEPATITIS C
     Dosage: 90/400MG
     Route: 048
     Dates: start: 20150508, end: 20150831

REACTIONS (2)
  - Hepatic cancer metastatic [None]
  - Hepatocellular carcinoma [None]

NARRATIVE: CASE EVENT DATE: 20150701
